FAERS Safety Report 7271890-2 (Version None)
Quarter: 2011Q1

REPORT INFORMATION
  Report Type: 
  Country: None (occurrence: None)
  Receive Date: 20110203
  Receipt Date: 20110131
  Transmission Date: 20110831
  Serious: Yes (Hospitalization)
  Sender: FDA-Public Use
  Company Number: US-JNJFOC-20101004371

PATIENT
  Age: 43 Year
  Sex: Male

DRUGS (2)
  1. ULTRAM ER [Concomitant]
     Dosage: 1 A DAY
     Route: 048
  2. NUCYNTA [Suspect]
     Indication: PROCEDURAL PAIN
     Route: 048

REACTIONS (1)
  - LOSS OF CONSCIOUSNESS [None]
